FAERS Safety Report 8162172-5 (Version None)
Quarter: 2012Q1

REPORT INFORMATION
  Report Type: 
  Country: None (occurrence: None)
  Receive Date: 20120224
  Receipt Date: 20110921
  Transmission Date: 20120608
  Serious: No
  Sender: FDA-Public Use
  Company Number: US-BRISTOL-MYERS SQUIBB COMPANY-16054470

PATIENT
  Age: 59 Year
  Sex: Female

DRUGS (2)
  1. GLUCOPHAGE [Suspect]
     Indication: TYPE 1 DIABETES MELLITUS
     Dates: start: 20010101
  2. GLYBURIDE [Suspect]
     Indication: TYPE 1 DIABETES MELLITUS
     Dates: start: 20010101

REACTIONS (1)
  - BLOOD GLUCOSE INCREASED [None]
